FAERS Safety Report 5127975-X (Version None)
Quarter: 2006Q4

REPORT INFORMATION
  Report Type: 
  Country: None (occurrence: None)
  Receive Date: 20061016
  Receipt Date: 20061005
  Transmission Date: 20070319
  Serious: Yes (Death)
  Sender: FDA-Public Use
  Company Number: GB-AMGEN-UK196180

PATIENT
  Age: 14 Year
  Sex: Female

DRUGS (3)
  1. NEULASTA [Suspect]
     Indication: CHEMOTHERAPY
     Route: 058
  2. CARBOPLATIN [Concomitant]
     Route: 065
  3. DOCETAXEL [Concomitant]
     Route: 065

REACTIONS (1)
  - CARDIAC ARREST [None]
